FAERS Safety Report 19639775 (Version 8)
Quarter: 2025Q3

REPORT INFORMATION
  Report Type: Spontaneous
  Country: EU (occurrence: EU)
  Receive Date: 20210729
  Receipt Date: 20250904
  Transmission Date: 20251021
  Serious: Yes (Other)
  Sender: NOVARTIS
  Company Number: NVSC2021CZ164881

PATIENT
  Age: 8 Month
  Sex: Female

DRUGS (2)
  1. ZOLGENSMA [Suspect]
     Active Substance: ONASEMNOGENE ABEPARVOVEC-XIOI
     Indication: Spinal muscular atrophy
     Route: 042
     Dates: start: 20210318, end: 20210318
  2. VITAMIN D [Concomitant]
     Active Substance: VITAMIN D NOS
     Indication: Product used for unknown indication
     Dosage: UNK, QD (DROPS, TEREZIA)
     Route: 065

REACTIONS (17)
  - Thrombosis [Unknown]
  - Thrombocytopenia [Recovered/Resolved]
  - Hyperglycaemia [Unknown]
  - Coagulopathy [Unknown]
  - Full blood count abnormal [Unknown]
  - Transaminases increased [Recovered/Resolved]
  - Blood iron decreased [Unknown]
  - Blood glucose increased [Unknown]
  - Asthenia [Unknown]
  - Cardiac disorder [Unknown]
  - Pain [Unknown]
  - Nausea [Unknown]
  - Platelet count decreased [Unknown]
  - Hepatic enzyme increased [Unknown]
  - Pyrexia [Recovered/Resolved]
  - Vomiting [Recovered/Resolved]
  - Steroid diabetes [Unknown]

NARRATIVE: CASE EVENT DATE: 20210318
